FAERS Safety Report 8617728-X (Version None)
Quarter: 2012Q3

REPORT INFORMATION
  Report Type: 
  Country: None (occurrence: None)
  Receive Date: 20120824
  Receipt Date: 20120210
  Transmission Date: 20120928
  Serious: No
  Sender: FDA-Public Use
  Company Number: US-ASTRAZENECA-2012SE00876

PATIENT
  Age: 3884 Day
  Sex: Male
  Weight: 39.9 kg

DRUGS (4)
  1. XOPENEX HFA [Concomitant]
     Indication: ASTHMA
  2. SYMBICORT [Suspect]
     Indication: ASTHMA
     Dosage: 160 , TWO PUFFS, TWO TIMES A DAY
     Route: 055
     Dates: start: 20110809, end: 20120104
  3. SINGULAIR [Concomitant]
     Indication: ASTHMA
  4. ZYRTEC [Concomitant]
     Indication: MULTIPLE ALLERGIES

REACTIONS (4)
  - TIC [None]
  - MUSCLE SPASMS [None]
  - MUSCLE TWITCHING [None]
  - DYSKINESIA [None]
